FAERS Safety Report 12998485 (Version 1)
Quarter: 2016Q4

REPORT INFORMATION
  Report Type: Spontaneous
  Country: FR (occurrence: FR)
  Receive Date: 20161205
  Receipt Date: 20161205
  Transmission Date: 20170207
  Serious: Yes (Hospitalization)
  Sender: FDA-Public Use
  Company Number: FR-PFIZER INC-2016553364

PATIENT
  Age: 74 Year
  Sex: Male

DRUGS (11)
  1. PRIMPERAN [Suspect]
     Active Substance: METOCLOPRAMIDE HYDROCHLORIDE
     Indication: PROPHYLAXIS OF NAUSEA AND VOMITING
     Dosage: UNK, AS NEEDED
     Route: 048
     Dates: start: 201610, end: 201610
  2. ALLOPURINOL. [Suspect]
     Active Substance: ALLOPURINOL
     Indication: TUMOUR LYSIS SYNDROME
     Dosage: 300 MG, 1X/DAY
     Route: 048
     Dates: start: 20161004, end: 20161013
  3. BISOPROLOL W/HYDROCHLOROTHIAZIDE /06833601/ [Concomitant]
     Active Substance: BISOPROLOL FUMARATE\HYDROCHLOROTHIAZIDE
     Dosage: UNK
  4. MABTHERA [Suspect]
     Active Substance: RITUXIMAB
     Indication: LYMPHOMA
     Dosage: 474 MG, SINGLE
     Route: 041
     Dates: start: 20161004, end: 20161004
  5. BISOPROLOL W/HYDROCHLOROTHIAZIDE /06833601/ [Concomitant]
     Active Substance: BISOPROLOL FUMARATE\HYDROCHLOROTHIAZIDE
     Dosage: UNK
     Dates: start: 20161018
  6. ENDOXAN /00021101/ [Suspect]
     Active Substance: CYCLOPHOSPHAMIDE
     Indication: LYMPHOMA
     Dosage: 1575 MG, SINGLE
     Route: 041
     Dates: start: 20161005, end: 20161005
  7. ZELITREX [Concomitant]
     Active Substance: VALACYCLOVIR HYDROCHLORIDE
     Indication: PROPHYLAXIS
     Dosage: 500 MG, 2X/DAY
     Route: 048
     Dates: start: 20161004, end: 20161013
  8. ZOPHREN /00955301/ [Suspect]
     Active Substance: ONDANSETRON
     Indication: PROPHYLAXIS OF NAUSEA AND VOMITING
     Dosage: 8 MG, 2X/DAY
     Route: 048
     Dates: start: 201610, end: 201610
  9. SOLUPRED /00016201/ [Suspect]
     Active Substance: PREDNISOLONE
     Indication: LYMPHOMA
     Dosage: 50 MG, 2X/DAY
     Route: 048
     Dates: start: 20161004, end: 20161008
  10. ZELITREX [Concomitant]
     Active Substance: VALACYCLOVIR HYDROCHLORIDE
     Dosage: UNK
     Dates: start: 20161018
  11. VINCRISTINE SULFATE. [Suspect]
     Active Substance: VINCRISTINE SULFATE
     Indication: LYMPHOMA
     Dosage: 2 MG, SINGLE
     Route: 041
     Dates: start: 20161005, end: 20161005

REACTIONS (5)
  - Rash [Recovered/Resolved]
  - Renal failure [Recovered/Resolved]
  - Pruritus [Recovered/Resolved]
  - Eosinophilia [Recovered/Resolved]
  - Dermatitis bullous [Recovered/Resolved]

NARRATIVE: CASE EVENT DATE: 20161010
